FAERS Safety Report 21611761 (Version 1)
Quarter: 2022Q4

REPORT INFORMATION
  Report Type: Report from Study
  Country: US (occurrence: US)
  Receive Date: 20221117
  Receipt Date: 20221117
  Transmission Date: 20230112
  Serious: No
  Sender: FDA-Public Use
  Company Number: US-ABBVIE-4169307

PATIENT
  Sex: Female

DRUGS (3)
  1. HUMIRA [Suspect]
     Active Substance: ADALIMUMAB
     Indication: Hidradenitis
     Dosage: CITRATE FREE   STRENGTH- 40 MG
     Route: 058
  2. Moderna [Concomitant]
     Indication: COVID-19 immunisation
     Dosage: 1ST DOSE FREQUENCY ONE IN ONCE
     Route: 030
     Dates: start: 20210817, end: 20210817
  3. Moderna [Concomitant]
     Indication: COVID-19 immunisation
     Dosage: 2ND DOSE FREQUENCY ONE IN ONCE
     Route: 030
     Dates: start: 20211005, end: 20211005

REACTIONS (2)
  - Headache [Recovered/Resolved]
  - Pruritus [Not Recovered/Not Resolved]
